FAERS Safety Report 11047534 (Version 1)
Quarter: 2015Q2

REPORT INFORMATION
  Report Type: Report from Study
  Country: IT (occurrence: IT)
  Receive Date: 20150420
  Receipt Date: 20150420
  Transmission Date: 20150821
  Serious: Yes (Hospitalization)
  Sender: FDA-Public Use
  Company Number: IT-ABBVIE-14P-083-1258940-00

PATIENT
  Sex: Male
  Weight: 90 kg

DRUGS (2)
  1. DUODOPA [Suspect]
     Active Substance: CARBIDOPA\LEVODOPA
     Indication: PRODUCT USED FOR UNKNOWN INDICATION
     Dosage: 6.5 ML/H, CONTINUOUS FREQUENCY
     Route: 050
     Dates: start: 20131213
  2. LERCANIDIPINE [Concomitant]
     Active Substance: LERCANIDIPINE
     Indication: HYPERTENSION
     Dosage: 20 MG

REACTIONS (5)
  - Parkinson^s disease [Unknown]
  - Rapid eye movements sleep abnormal [Recovered/Resolved]
  - Weight decreased [Recovered/Resolved]
  - Dyskinesia [Not Recovered/Not Resolved]
  - Hyperkinesia [Recovering/Resolving]

NARRATIVE: CASE EVENT DATE: 201312
